FAERS Safety Report 21462604 (Version 1)
Quarter: 2022Q4

REPORT INFORMATION
  Report Type: Report from Study
  Country: US (occurrence: US)
  Receive Date: 20221016
  Receipt Date: 20221016
  Transmission Date: 20230112
  Serious: No
  Sender: FDA-Public Use
  Company Number: US-ACADIA PHARMACEUTICALS INC.-ACA-2022-PIM-003247

PATIENT
  Age: 61 Year
  Sex: Female

DRUGS (14)
  1. NUPLAZID [Suspect]
     Active Substance: PIMAVANSERIN TARTRATE
     Indication: Parkinson^s disease psychosis
     Dosage: 34 MILLIGRAM, QD
     Route: 048
     Dates: start: 20220921
  2. NUPLAZID [Suspect]
     Active Substance: PIMAVANSERIN TARTRATE
     Indication: Hallucination
  3. NUPLAZID [Suspect]
     Active Substance: PIMAVANSERIN TARTRATE
     Indication: Delusion
  4. GABAPENTIN [Concomitant]
     Active Substance: GABAPENTIN
     Indication: Hypoaesthesia
  5. ABILIFY [Concomitant]
     Active Substance: ARIPIPRAZOLE
  6. LEXAPRO [Concomitant]
     Active Substance: ESCITALOPRAM OXALATE
  7. SEROQUEL [Concomitant]
     Active Substance: QUETIAPINE FUMARATE
  8. ATORVASTATIN [Concomitant]
     Active Substance: ATORVASTATIN
  9. VITAMIN D3 [Concomitant]
     Active Substance: CHOLECALCIFEROL
  10. ASCORBIC ACID [Concomitant]
     Active Substance: ASCORBIC ACID
  11. RYTARY [Concomitant]
     Active Substance: CARBIDOPA\LEVODOPA
  12. CICLOPIROX [Concomitant]
     Active Substance: CICLOPIROX
  13. POTASSIUM CHLORIDE [Concomitant]
     Active Substance: POTASSIUM CHLORIDE
  14. SOLIFENACIN [Concomitant]
     Active Substance: SOLIFENACIN
     Indication: Incontinence

REACTIONS (5)
  - Hypokinesia [Unknown]
  - Product dose omission issue [Unknown]
  - Memory impairment [Unknown]
  - Hypoaesthesia [Unknown]
  - Paraesthesia [Unknown]

NARRATIVE: CASE EVENT DATE: 20220901
